FAERS Safety Report 16271102 (Version 1)
Quarter: 2019Q2

REPORT INFORMATION
  Report Type: Spontaneous
  Country: ES (occurrence: ES)
  Receive Date: 20190503
  Receipt Date: 20190503
  Transmission Date: 20190711
  Serious: Yes (Hospitalization)
  Sender: FDA-Public Use
  Company Number: ES-TAKEDA-2019TUS027796

PATIENT
  Age: 23 Year
  Sex: Male

DRUGS (1)
  1. VORTIOXETINE. [Suspect]
     Active Substance: VORTIOXETINE
     Indication: ANXIETY
     Dosage: 10 MILLIGRAM, QD
     Route: 048
     Dates: start: 20181218, end: 20190109

REACTIONS (4)
  - Product use in unapproved indication [Unknown]
  - Anxiety [Recovered/Resolved]
  - Insomnia [Recovered/Resolved]
  - Behaviour disorder [Recovered/Resolved]

NARRATIVE: CASE EVENT DATE: 20190109
